FAERS Safety Report 7610533-2 (Version None)
Quarter: 2011Q3

REPORT INFORMATION
  Report Type: 
  Country: None (occurrence: None)
  Receive Date: 20110707
  Receipt Date: 20110622
  Transmission Date: 20111222
  Serious: Yes (Hospitalization, Other)
  Sender: FDA-Public Use
  Company Number: 2011MA008111

PATIENT
  Age: 49 Year
  Sex: Male

DRUGS (2)
  1. CLOZARIL [Suspect]
     Indication: SCHIZOPHRENIA
     Dosage: PO
     Route: 048
     Dates: start: 20060327
  2. IBUPROFEN [Suspect]
     Dosage: 78; 1X;PO
     Route: 048
     Dates: start: 20060705

REACTIONS (1)
  - INTENTIONAL OVERDOSE [None]
